FAERS Safety Report 8934694 (Version 1)
Quarter: 2012Q4

REPORT INFORMATION
  Report Type: 
  Country: CR (occurrence: CR)
  Receive Date: 20121129
  Receipt Date: 20121129
  Transmission Date: 20130627
  Serious: Yes (Other)
  Sender: FDA-Public Use
  Company Number: CR-PFIZER INC-2012297371

PATIENT
  Sex: Female

DRUGS (3)
  1. LYRICA [Suspect]
     Indication: NEUROPATHY
     Dosage: 600 mg, UNK
     Dates: start: 2008
  2. LYRICA [Suspect]
     Dosage: 150 mg, UNK
  3. LYRICA [Suspect]
     Dosage: 75 mg, UNK

REACTIONS (5)
  - Withdrawal syndrome [Unknown]
  - Tachycardia [Unknown]
  - Nausea [Unknown]
  - Insomnia [Unknown]
  - Pain [Not Recovered/Not Resolved]
